FAERS Safety Report 6735106-5 (Version None)
Quarter: 2010Q2

REPORT INFORMATION
  Report Type: 
  Country: None (occurrence: None)
  Receive Date: 20100521
  Receipt Date: 20100512
  Transmission Date: 20101027
  Serious: Yes (Hospitalization, Other)
  Sender: FDA-Public Use
  Company Number: CN-JNJFOC-20100504848

PATIENT
  Sex: Male
  Weight: 1.6 kg

DRUGS (3)
  1. GYNO DAKTARIN [Suspect]
     Route: 064
  2. GYNO DAKTARIN [Suspect]
     Indication: DRUG EXPOSURE DURING PREGNANCY
     Route: 064
  3. ALL OTHER THERAPEUTIC PRODUCTS [Suspect]
     Indication: PLACENTA PRAEVIA
     Route: 065

REACTIONS (3)
  - JAUNDICE NEONATAL [None]
  - PNEUMONIA [None]
  - PREMATURE BABY [None]
